FAERS Safety Report 17098137 (Version 1)
Quarter: 2019Q4

REPORT INFORMATION
  Report Type: Other
  Country: US (occurrence: US)
  Receive Date: 20191202
  Receipt Date: 20191202
  Transmission Date: 20200122
  Serious: Yes (Life-Threatening, Other)
  Sender: FDA-Public Use
  Company Number: US-P+L DEVELOPMENTS OF NEWYORK CORPORATION-2077360

PATIENT
  Age: 55 Year
  Sex: Male

DRUGS (1)
  1. IBUPROFEN. [Suspect]
     Active Substance: IBUPROFEN
     Indication: PAIN IN JAW
     Route: 065

REACTIONS (8)
  - Hemiparesis [Recovered/Resolved]
  - Aphasia [Recovered/Resolved]
  - Generalised tonic-clonic seizure [Recovered/Resolved]
  - Agitation [Recovered/Resolved]
  - Encephalitis [Recovered/Resolved]
  - Pyrexia [Recovered/Resolved]
  - Aggression [Recovered/Resolved]
  - Facial paralysis [Recovered/Resolved]
